FAERS Safety Report 10176055 (Version 1)
Quarter: 2014Q2

REPORT INFORMATION
  Report Type: Spontaneous
  Country: US (occurrence: US)
  Receive Date: 20140516
  Receipt Date: 20140516
  Transmission Date: 20141212
  Serious: Yes (Other)
  Sender: FDA-Public Use
  Company Number: US-ACCORD-023611

PATIENT
  Age: 72 Year
  Sex: Male

DRUGS (2)
  1. CYANOCOBALAMIN/CYANOCOBALAMIN ZINC TANNATE/CYANOCOBALAMIN-TANNIN COMPLEX [Concomitant]
     Indication: VITAMIN B12 DEFICIENCY
  2. GEMCITABINE/GEMCITABINE HYDROCHLORID E [Suspect]
     Indication: PANCREATIC CARCINOMA METASTATIC

REACTIONS (3)
  - Normochromic normocytic anaemia [Unknown]
  - Oedema peripheral [Unknown]
  - Cellulitis [Recovered/Resolved]
